FAERS Safety Report 4295314-2 (Version None)
Quarter: 2004Q1

REPORT INFORMATION
  Report Type: 
  Country: None (occurrence: None)
  Receive Date: 20040216
  Receipt Date: 20030529
  Transmission Date: 20041129
  Serious: No
  Sender: FDA-Public Use
  Company Number: US-GLAXOSMITHKLINE-A0410592A

PATIENT

DRUGS (2)
  1. LAMICTAL [Suspect]
     Route: 048
  2. IMMUNE GLOBULIN INTRAVENOUS (HUMAN) [Concomitant]

REACTIONS (2)
  - IMMUNOGLOBULINS DECREASED [None]
  - LYME DISEASE [None]
